FAERS Safety Report 6045267-1 (Version None)
Quarter: 2009Q1

REPORT INFORMATION
  Report Type: 
  Country: None (occurrence: None)
  Receive Date: 20090121
  Receipt Date: 20090109
  Transmission Date: 20090719
  Serious: Yes (Other)
  Sender: FDA-Public Use
  Company Number: PHHY2009NL01022

PATIENT
  Sex: Male

DRUGS (8)
  1. DIOVAN [Suspect]
     Dosage: 80 MG
  2. DIOVAN HCT [Suspect]
  3. LYRICA [Concomitant]
  4. GLUCOPHAGE [Concomitant]
  5. LANTUS [Concomitant]
  6. MARCUMAR [Concomitant]
  7. LIPITOR [Concomitant]
  8. SELOKEEN [Concomitant]

REACTIONS (2)
  - MUSCLE SPASMS [None]
  - MYOCARDIAL INFARCTION [None]
